FAERS Safety Report 24587155 (Version 2)
Quarter: 2024Q4

REPORT INFORMATION
  Report Type: Report from Study
  Country: US (occurrence: US)
  Receive Date: 20241107
  Receipt Date: 20241117
  Transmission Date: 20250115
  Serious: Yes (Hospitalization, Other)
  Sender: ABBVIE
  Company Number: US-ABBVIE-5988507

PATIENT
  Age: 44 Year
  Sex: Male
  Weight: 100.24 kg

DRUGS (1)
  1. SKYRIZI [Suspect]
     Active Substance: RISANKIZUMAB-RZAA
     Indication: Psoriatic arthropathy
     Route: 058
     Dates: start: 2023, end: 20240823

REACTIONS (10)
  - Cholecystitis [Recovering/Resolving]
  - Abdominal pain [Recovered/Resolved]
  - Hepatitis [Unknown]
  - Helicobacter infection [Recovering/Resolving]
  - Back pain [Recovered/Resolved]
  - White blood cell count increased [Recovering/Resolving]
  - Stress [Unknown]
  - Blood urine present [Recovered/Resolved]
  - Pain [Unknown]
  - Discomfort [Recovered/Resolved]

NARRATIVE: CASE EVENT DATE: 20240101
